FAERS Safety Report 9367413 (Version 2)
Quarter: 2013Q4

REPORT INFORMATION
  Report Type: Spontaneous
  Country: US (occurrence: US)
  Receive Date: 20130625
  Receipt Date: 20131209
  Transmission Date: 20140711
  Serious: Yes (Death, Hospitalization)
  Sender: FDA-Public Use
  Company Number: US-B.I. PHARMACEUTICALS,INC./RIDGEFIELD-2013-BI-17933BP

PATIENT
  Age: 87 Year
  Sex: Male
  Weight: 81.65 kg

DRUGS (2)
  1. PRADAXA [Suspect]
     Indication: ANTICOAGULANT THERAPY
     Dates: start: 20110726, end: 20111011
  2. STEROIDS [Concomitant]
     Indication: ARTHRITIS

REACTIONS (6)
  - Pulmonary embolism [Fatal]
  - Gastrointestinal haemorrhage [Recovered/Resolved]
  - Haemorrhagic anaemia [Unknown]
  - Iron deficiency anaemia [Unknown]
  - Coagulopathy [Recovered/Resolved]
  - Renal failure acute [Recovered/Resolved]
